FAERS Safety Report 18470644 (Version 1)
Quarter: 2020Q4

REPORT INFORMATION
  Report Type: Spontaneous
  Country: US (occurrence: US)
  Receive Date: 20201106
  Receipt Date: 20201106
  Transmission Date: 20210114
  Serious: Yes (Other)
  Sender: FDA-Public Use
  Company Number: US-DRREDDYS-USA/USA/20/0128807

PATIENT
  Age: 43 Year
  Sex: Male

DRUGS (6)
  1. PRAZIQUANTEL. [Suspect]
     Active Substance: PRAZIQUANTEL
  2. ALBENDAZOLE. [Suspect]
     Active Substance: ALBENDAZOLE
     Indication: NEUROCYSTICERCOSIS
  3. DEXAMETHASONE SODIUM PHOSPHATE INJECTION, 4 MG/ML [Suspect]
     Active Substance: DEXAMETHASONE SODIUM PHOSPHATE
     Dosage: TAPPER DOSE
  4. DEXAMETHASONE SODIUM PHOSPHATE INJECTION, 4 MG/ML [Suspect]
     Active Substance: DEXAMETHASONE SODIUM PHOSPHATE
     Indication: NEUROCYSTICERCOSIS
  5. PRAZIQUANTEL. [Suspect]
     Active Substance: PRAZIQUANTEL
     Indication: NEUROCYSTICERCOSIS
  6. ALBENDAZOLE. [Suspect]
     Active Substance: ALBENDAZOLE

REACTIONS (3)
  - Seizure [Recovered/Resolved]
  - Headache [Unknown]
  - Brain oedema [Unknown]
